FAERS Safety Report 6152178-X (Version None)
Quarter: 2009Q2

REPORT INFORMATION
  Report Type: 
  Country: None (occurrence: None)
  Receive Date: 20090410
  Receipt Date: 20090223
  Transmission Date: 20091009
  Serious: Yes (Other)
  Sender: FDA-Public Use
  Company Number: KE-GILEAD-2009-0021122

PATIENT
  Sex: Female

DRUGS (6)
  1. TRUVADA [Suspect]
     Indication: HIV INFECTION
     Dates: start: 20081028
  2. TRUVADA [Suspect]
     Dates: start: 20071030, end: 20080902
  3. TRUVADA [Suspect]
     Dates: start: 20070829, end: 20070927
  4. EMTRIVA [Suspect]
     Indication: HIV INFECTION
     Dates: start: 20080902, end: 20081028
  5. NEVIRAPINE [Concomitant]
     Indication: HIV INFECTION
     Dates: start: 20070829, end: 20070927
  6. ZIDOVUDINE [Concomitant]
     Indication: HIV INFECTION
     Dates: start: 20080902, end: 20081028

REACTIONS (1)
  - ABORTION SPONTANEOUS [None]
